FAERS Safety Report 4405679-6 (Version None)
Quarter: 2004Q3

REPORT INFORMATION
  Report Type: 
  Country: None (occurrence: None)
  Receive Date: 20040723
  Receipt Date: 20031112
  Transmission Date: 20050211
  Serious: No
  Sender: FDA-Public Use
  Company Number: US-GLAXOSMITHKLINE-A0439415A

PATIENT
  Age: 67 Year
  Sex: Male

DRUGS (9)
  1. AVANDIA [Suspect]
     Route: 048
  2. GLUCOVANCE [Concomitant]
  3. INSULIN [Concomitant]
  4. LANTUS [Concomitant]
  5. DIURETIC [Concomitant]
  6. ACCUPRIL [Concomitant]
     Indication: HYPERTENSION
  7. ASPIRIN [Concomitant]
  8. ZOCOR [Concomitant]
  9. ZYLOPRIM [Concomitant]
     Indication: GOUT

REACTIONS (1)
  - WEIGHT INCREASED [None]
